FAERS Safety Report 8836237 (Version 2)
Quarter: 2012Q4

REPORT INFORMATION
  Report Type: 
  Country: US (occurrence: US)
  Receive Date: 20121011
  Receipt Date: 20121022
  Transmission Date: 20130627
  Serious: Yes (Hospitalization)
  Sender: FDA-Public Use
  Company Number: PHHY2012US087995

PATIENT
  Age: 12 Year
  Sex: Male
  Weight: 62 kg

DRUGS (3)
  1. CLINDAMYCIN [Suspect]
     Indication: STAPHYLOCOCCUS TEST POSITIVE
     Dosage: 700 mg,every 8 hrs
     Route: 042
  2. CLINDAMYCIN [Suspect]
     Dosage: 930 mg,every 8 hrs
  3. CALCIUM CARBONATE [Concomitant]

REACTIONS (2)
  - Renal failure acute [Recovering/Resolving]
  - Hyperphosphataemia [Recovering/Resolving]
